FAERS Safety Report 25041468 (Version 1)
Quarter: 2025Q1

REPORT INFORMATION
  Report Type: Spontaneous
  Country: JP (occurrence: JP)
  Receive Date: 20250305
  Receipt Date: 20250305
  Transmission Date: 20250408
  Serious: Yes (Death, Life-Threatening, Hospitalization, Other)
  Sender: PFIZER
  Company Number: JP-PFIZER INC-PV202500024985

PATIENT
  Age: 53 Year
  Sex: Male

DRUGS (7)
  1. VORICONAZOLE [Suspect]
     Active Substance: VORICONAZOLE
     Indication: Fusarium infection
  2. ITRACONAZOLE [Suspect]
     Active Substance: ITRACONAZOLE
     Indication: Fusarium infection
     Route: 065
  3. AMPHOTERICIN B [Suspect]
     Active Substance: AMPHOTERICIN B
     Indication: Fusarium infection
     Route: 065
  4. CASPOFUNGIN [Suspect]
     Active Substance: CASPOFUNGIN
     Indication: Fusarium infection
     Route: 065
  5. CEFMETAZOLE [Suspect]
     Active Substance: CEFMETAZOLE
     Indication: Febrile neutropenia
  6. DORIPENEM [Suspect]
     Active Substance: DORIPENEM
     Indication: Febrile neutropenia
  7. VANCOMYCIN [Suspect]
     Active Substance: VANCOMYCIN
     Indication: Infection

REACTIONS (2)
  - Drug ineffective [Fatal]
  - Organ failure [Fatal]
